FAERS Safety Report 18694514 (Version 1)
Quarter: 2020Q4

REPORT INFORMATION
  Report Type: Spontaneous
  Country: US (occurrence: US)
  Receive Date: 20201231
  Receipt Date: 20201231
  Transmission Date: 20210114
  Serious: Yes (Disabling)
  Sender: FDA-Public Use
  Company Number: None

PATIENT
  Age: 71 Year
  Sex: Male
  Weight: 75.6 kg

DRUGS (7)
  1. OMENZEPROLE [Concomitant]
  2. KLONOPIN [Concomitant]
     Active Substance: CLONAZEPAM
  3. TYLENOL [Concomitant]
     Active Substance: ACETAMINOPHEN
  4. CYMBALTA [Concomitant]
     Active Substance: DULOXETINE HYDROCHLORIDE
  5. CELEBREX [Concomitant]
     Active Substance: CELECOXIB
  6. VITAMIN D3 [Concomitant]
     Active Substance: CHOLECALCIFEROL
  7. GABAPENTIN. [Suspect]
     Active Substance: GABAPENTIN
     Indication: RESTLESS LEGS SYNDROME
     Route: 048

REACTIONS (3)
  - Myoclonus [None]
  - Muscle spasms [None]
  - Inspiratory capacity decreased [None]

NARRATIVE: CASE EVENT DATE: 20201230
